FAERS Safety Report 5794816-7 (Version None)
Quarter: 2008Q2

REPORT INFORMATION
  Report Type: 
  Country: None (occurrence: None)
  Receive Date: 20080630
  Receipt Date: 20080620
  Transmission Date: 20081010
  Serious: Yes (Other)
  Sender: FDA-Public Use
  Company Number: B0399200A

PATIENT
  Sex: Female

DRUGS (13)
  1. PAROXETINE HCL [Suspect]
     Route: 065
     Dates: start: 20010417
  2. PAROXETINE HCL [Suspect]
     Route: 048
  3. BUSPIRONE HCL [Concomitant]
     Dates: start: 20050210, end: 20050501
  4. EFFEXOR [Concomitant]
     Dates: start: 20050401
  5. DIAZEPAM [Concomitant]
     Dosage: 2MG TWICE PER DAY
     Dates: start: 19900301, end: 20051219
  6. STELAZINE [Concomitant]
     Dates: start: 19940101
  7. NIQUITIN [Concomitant]
     Dates: start: 20050124, end: 20050201
  8. DOMPERIDONE [Concomitant]
  9. LOSARTAN POTASSIUM [Concomitant]
     Dates: end: 20050801
  10. PROPRANOLOL [Concomitant]
     Dosage: 10MG FOUR TIMES PER DAY
     Dates: start: 19900101
  11. ZOPICLONE [Concomitant]
     Dates: start: 19960101, end: 20050801
  12. DOSULEPIN [Concomitant]
     Dates: end: 20060401
  13. ENSURE [Concomitant]

REACTIONS (15)
  - ABNORMAL DREAMS [None]
  - CHILLS [None]
  - COMMUNICATION DISORDER [None]
  - DEPRESSION [None]
  - DYSKINESIA [None]
  - FATIGUE [None]
  - LETHARGY [None]
  - NAUSEA [None]
  - NIGHTMARE [None]
  - PARAESTHESIA [None]
  - RESTLESSNESS [None]
  - SUICIDAL IDEATION [None]
  - TREMOR [None]
  - WEIGHT DECREASED [None]
  - WITHDRAWAL SYNDROME [None]
